FAERS Safety Report 5584223-4 (Version None)
Quarter: 2008Q1

REPORT INFORMATION
  Report Type: 
  Country: None (occurrence: None)
  Receive Date: 20080108
  Receipt Date: 20071224
  Transmission Date: 20080703
  Serious: Yes (Other)
  Sender: FDA-Public Use
  Company Number: DE-WYE-G00824507

PATIENT
  Age: 26 Year
  Sex: Male

DRUGS (2)
  1. TREVILOR [Suspect]
     Indication: DEPRESSION
     Dosage: UNKNOWN
  2. ALCOHOL [Interacting]
     Dosage: UNKNOWN
     Route: 048

REACTIONS (5)
  - ABNORMAL BEHAVIOUR [None]
  - ALCOHOL INTERACTION [None]
  - AMNESIA [None]
  - BLOOD ALCOHOL INCREASED [None]
  - ROAD TRAFFIC ACCIDENT [None]
